FAERS Safety Report 20419337 (Version 1)
Quarter: 2022Q1

REPORT INFORMATION
  Report Type: Spontaneous
  Country: US (occurrence: US)
  Receive Date: 20220203
  Receipt Date: 20220203
  Transmission Date: 20220423
  Serious: Yes (Other)
  Sender: FDA-Public Use
  Company Number: US-SUN PHARMACEUTICAL INDUSTRIES LTD-2020R1-274296

PATIENT
  Sex: Male

DRUGS (1)
  1. METOPROLOL [Suspect]
     Active Substance: METOPROLOL
     Indication: Diabetes mellitus
     Dosage: 90 MG, 3 TIMES A DAY (NOT CLARIFIED)
     Route: 065

REACTIONS (3)
  - Neuropathy peripheral [Unknown]
  - Feeling hot [Unknown]
  - Drug resistance [Unknown]
